FAERS Safety Report 16638118 (Version 4)
Quarter: 2021Q1

REPORT INFORMATION
  Report Type: Report from Study
  Country: CO (occurrence: CO)
  Receive Date: 20190726
  Receipt Date: 20210210
  Transmission Date: 20210419
  Serious: Yes (Other)
  Sender: FDA-Public Use
  Company Number: PHHY2019CO171843

PATIENT
  Age: 56 Year
  Sex: Female
  Weight: 68 kg

DRUGS (5)
  1. AFINITOR [Suspect]
     Active Substance: EVEROLIMUS
     Indication: BREAST CANCER
     Dosage: 10 MG, QD
     Route: 048
     Dates: start: 20180725
  2. EXEMESTANE. [Concomitant]
     Active Substance: EXEMESTANE
     Indication: BREAST CANCER
     Dosage: 25 MG, QD
     Route: 048
     Dates: start: 20180725
  3. EXEMESTANE. [Concomitant]
     Active Substance: EXEMESTANE
     Dosage: 25 MG, QD
     Route: 048
     Dates: start: 201808
  4. AFINITOR [Interacting]
     Active Substance: EVEROLIMUS
     Dosage: 10 MG, Q24H (TREATMENT STOP 3 MONTHS AGO)
     Route: 048
     Dates: start: 201808
  5. PHENOBARBITAL. [Concomitant]
     Active Substance: PHENOBARBITAL
     Indication: EPILEPSY
     Dosage: 100 MG, QD (SINCE SHE WAS 13 YEARS OLD)
     Route: 048

REACTIONS (7)
  - Seizure [Unknown]
  - Decreased appetite [Unknown]
  - Abdominal discomfort [Unknown]
  - Drug interaction [Unknown]
  - Hypertension [Unknown]
  - Nausea [Unknown]
  - Product supply issue [Unknown]

NARRATIVE: CASE EVENT DATE: 2019
